FAERS Safety Report 13595918 (Version 1)
Quarter: 2017Q2

REPORT INFORMATION
  Report Type: Spontaneous
  Country: US (occurrence: US)
  Receive Date: 20170531
  Receipt Date: 20170531
  Transmission Date: 20170830
  Serious: No
  Sender: FDA-Public Use
  Company Number: US-JNJFOC-20170509596

PATIENT
  Sex: Female

DRUGS (2)
  1. ACETAMINOPHEN. [Suspect]
     Active Substance: ACETAMINOPHEN
     Indication: PROPHYLAXIS
     Dosage: TOTAL DAILY DOSE: 650, AS NECESSARY
     Route: 051
     Dates: start: 20160601
  2. ACETAMINOPHEN. [Suspect]
     Active Substance: ACETAMINOPHEN
     Route: 051

REACTIONS (4)
  - Exposure during pregnancy [Unknown]
  - Product use in unapproved indication [Unknown]
  - Off label use [Unknown]
  - Incorrect route of drug administration [Unknown]
